FAERS Safety Report 22660790 (Version 1)
Quarter: 2023Q2

REPORT INFORMATION
  Report Type: Report from Study
  Country: US (occurrence: US)
  Receive Date: 20230630
  Receipt Date: 20230630
  Transmission Date: 20230722
  Serious: Yes (Other)
  Sender: FDA-Public Use
  Company Number: US-GW PHARMA-2022-US-024029

PATIENT
  Age: 24 Year
  Sex: Female
  Weight: 111.3 kg

DRUGS (2)
  1. EPIDIOLEX [Suspect]
     Active Substance: CANNABIDIOL
     Indication: Lennox-Gastaut syndrome
     Dosage: 4 MILLILITER, BID
     Route: 048
     Dates: end: 20230310
  2. EPIDIOLEX [Suspect]
     Active Substance: CANNABIDIOL
     Dosage: FREQUENCY: BID
     Dates: start: 20221116

REACTIONS (1)
  - Diarrhoea [Unknown]

NARRATIVE: CASE EVENT DATE: 20220715
